FAERS Safety Report 9239867 (Version 1)
Quarter: 2013Q2

REPORT INFORMATION
  Report Type: Report from Study
  Country: US (occurrence: US)
  Receive Date: 20130418
  Receipt Date: 20130418
  Transmission Date: 20140414
  Serious: No
  Sender: FDA-Public Use
  Company Number: US-009507513-1208USA010516

PATIENT
  Sex: Male

DRUGS (4)
  1. REBETOL [Suspect]
     Indication: HEPATITIS C
     Dosage: 1200 MG, QD
     Route: 048
     Dates: start: 2012, end: 2012
  2. REBETOL [Suspect]
     Dosage: 600 MG, QD
     Route: 048
     Dates: start: 2012
  3. VICTRELIS [Suspect]
     Indication: HEPATITIS C
     Dosage: UNK
  4. PEG-INTRON REDIPEN [Concomitant]
     Dosage: UNK

REACTIONS (1)
  - Anaemia [Unknown]
